FAERS Safety Report 18114949 (Version 1)
Quarter: 2020Q3

REPORT INFORMATION
  Report Type: Spontaneous
  Country: US (occurrence: US)
  Receive Date: 20200805
  Receipt Date: 20200805
  Transmission Date: 20201103
  Serious: Yes (Other)
  Sender: FDA-Public Use
  Company Number: US-MYLANLABS-2020M1069832

PATIENT
  Age: 72 Year
  Sex: Female

DRUGS (11)
  1. DAPTOMYCIN. [Suspect]
     Active Substance: DAPTOMYCIN
     Dosage: 12 MG/KG; SECOND COURSE SCHEDULED FOR 2 WEEKS; ON FRIDAY POST HAEMODIALYSIS
     Route: 042
  2. DAPTOMYCIN. [Suspect]
     Active Substance: DAPTOMYCIN
     Indication: STAPHYLOCOCCAL SEPSIS
     Dosage: 8 MG/KG FIRST COURSE SCHEDULED FOR 6 WEEKS (MONDAY,WEDNESDAY)
     Route: 042
  3. DAPTOMYCIN. [Suspect]
     Active Substance: DAPTOMYCIN
     Dosage: 8 MG/KG; THIRD COURSE SCHEDULED FOR 4 WEEKS (MONDAY,WEDNESDAY)
     Route: 042
  4. DAPTOMYCIN. [Suspect]
     Active Substance: DAPTOMYCIN
     Dosage: 11 MG/KG; FOURTH COURSE OF DAPTOMYCIN SCHEDULED FOR 4 WEEKS; POST HAEMODIALYSIS
     Route: 042
  5. DAPTOMYCIN. [Suspect]
     Active Substance: DAPTOMYCIN
     Dosage: SHE WAS THEN TREATED WITH DAPTOMYCIN AT THE DOSE OF 10MG/KG POST?HAEMODIALYSIS
     Route: 042
  6. RIFAMPIN. [Concomitant]
     Active Substance: RIFAMPIN
     Indication: STAPHYLOCOCCAL INFECTION
     Dosage: UNK
     Route: 065
  7. VANCOMYCIN [Suspect]
     Active Substance: VANCOMYCIN
     Indication: STAPHYLOCOCCAL SEPSIS
     Dosage: UNK
     Route: 065
  8. DAPTOMYCIN. [Suspect]
     Active Substance: DAPTOMYCIN
     Dosage: 9 MG/KG; FIRST COURSE SCHEDULED FOR 6 WEEKS; ON FRIDAY, POST HAEMODIALYSIS
     Route: 042
  9. DAPTOMYCIN. [Suspect]
     Active Substance: DAPTOMYCIN
     Dosage: 8 MG/KG; SECOND COURSE SCHEDULED FOR 2 WEEKS (MONDAY, WEDNESDAY)
     Route: 042
  10. DAPTOMYCIN. [Suspect]
     Active Substance: DAPTOMYCIN
     Dosage: 12 MG/KG; THIRD COURSE SCHEDULED FOR 4 WEEKS; ON FRIDAY POST HAEMODIALYSIS.
     Route: 042
  11. DAPTOMYCIN. [Suspect]
     Active Substance: DAPTOMYCIN
     Dosage: 11MG/KG; FIFTH COURSE OF DAPTOMYCIN; POST HAEMODIALYSIS
     Route: 042

REACTIONS (1)
  - Drug resistance [Unknown]
